FAERS Safety Report 5804061-4 (Version None)
Quarter: 2008Q3

REPORT INFORMATION
  Report Type: 
  Country: None (occurrence: None)
  Receive Date: 20080707
  Receipt Date: 20080707
  Transmission Date: 20090109
  Serious: No
  Sender: FDA-Public Use
  Company Number: None

PATIENT
  Age: 53 Year
  Sex: Female
  Weight: 56.6996 kg

DRUGS (3)
  1. FOSAMAX [Suspect]
     Indication: OSTEOPOROSIS
     Dosage: 70MG WEEKLY ORAL
     Route: 048
     Dates: start: 20030601, end: 20060601
  2. AMOUR [Concomitant]
  3. DIOVAN [Concomitant]

REACTIONS (1)
  - BONE DISORDER [None]
